FAERS Safety Report 19679077 (Version 1)
Quarter: 2021Q3

REPORT INFORMATION
  Report Type: Spontaneous
  Country: FR (occurrence: FR)
  Receive Date: 20210809
  Receipt Date: 20210809
  Transmission Date: 20211014
  Serious: Yes (Other)
  Sender: FDA-Public Use
  Company Number: FR-MYLANLABS-2021M1048886

PATIENT
  Age: 5 Day
  Sex: Female
  Weight: 2.6 kg

DRUGS (1)
  1. ACICLOVIR MYLAN [Suspect]
     Active Substance: ACYCLOVIR
     Indication: INFECTION PROPHYLAXIS
     Dosage: 55 MILLIGRAM, Q8H
     Route: 042
     Dates: start: 20210126

REACTIONS (1)
  - Enterocolitis haemorrhagic [Not Recovered/Not Resolved]

NARRATIVE: CASE EVENT DATE: 20210128
